FAERS Safety Report 8352731-9 (Version None)
Quarter: 2012Q2

REPORT INFORMATION
  Report Type: 
  Country: None (occurrence: None)
  Receive Date: 20120511
  Receipt Date: 20120503
  Transmission Date: 20120825
  Serious: Yes (Hospitalization)
  Sender: FDA-Public Use
  Company Number: US-BAYER-2012-030025

PATIENT
  Age: 39 Year
  Sex: Female
  Weight: 98.6 kg

DRUGS (7)
  1. NORVASC [Concomitant]
     Route: 048
  2. ALLERGY MEDICATION [Concomitant]
  3. DROSPIRENONE AND ETHINYL ESTRADIOL [Suspect]
     Dosage: UNK
     Dates: start: 20090101, end: 20090301
  4. TYLENOL (CAPLET) [Concomitant]
  5. YAZ [Suspect]
     Dosage: UNK
     Dates: start: 20090101, end: 20090301
  6. FERROUS SULFATE TAB [Concomitant]
     Route: 048
  7. YASMIN [Suspect]
     Dosage: UNK
     Dates: start: 20090101, end: 20090301

REACTIONS (7)
  - PAIN [None]
  - INJURY [None]
  - GENERAL PHYSICAL HEALTH DETERIORATION [None]
  - ANXIETY [None]
  - ACUTE MYOCARDIAL INFARCTION [None]
  - PULMONARY EMBOLISM [None]
  - EMOTIONAL DISTRESS [None]
